FAERS Safety Report 11930830 (Version 1)
Quarter: 2016Q1

REPORT INFORMATION
  Report Type: Spontaneous
  Country: US (occurrence: None)
  Receive Date: 20160120
  Receipt Date: 20160120
  Transmission Date: 20160526
  Serious: Yes (Hospitalization)
  Sender: FDA-Public Use
  Company Number: None

PATIENT
  Age: 15 Year
  Sex: Male
  Weight: 51.9 kg

DRUGS (5)
  1. VINCRISTINE SULFATE. [Suspect]
     Active Substance: VINCRISTINE SULFATE
     Dates: end: 20151019
  2. METHOTREXATE [Suspect]
     Active Substance: METHOTREXATE
     Dates: end: 20151005
  3. DOXORUBICIN HYDROCHLORIDE. [Suspect]
     Active Substance: DOXORUBICIN HYDROCHLORIDE
     Dates: end: 20151019
  4. PEG-L-ASPARAGINASE [Suspect]
     Active Substance: PEGASPARGASE
     Dates: end: 20151022
  5. DEXAMETHASONE. [Suspect]
     Active Substance: DEXAMETHASONE
     Dates: end: 20151025

REACTIONS (4)
  - Heart rate increased [None]
  - Pulmonary embolism [None]
  - Chest pain [None]
  - Neutropenia [None]

NARRATIVE: CASE EVENT DATE: 20151102
